FAERS Safety Report 7475025-2 (Version None)
Quarter: 2011Q2

REPORT INFORMATION
  Report Type: 
  Country: None (occurrence: None)
  Receive Date: 20110509
  Receipt Date: 20110509
  Transmission Date: 20111010
  Serious: Yes (Disabling, Other)
  Sender: FDA-Public Use
  Company Number: None

PATIENT
  Age: 45 Year
  Sex: Male
  Weight: 61.2356 kg

DRUGS (2)
  1. REMICADE [Suspect]
     Indication: CROHN'S DISEASE
     Dosage: 6MG ONCE EVERY TWO MON IV DRIP
     Route: 041
     Dates: start: 20100301, end: 20110301
  2. CIMZIA [Suspect]
     Indication: CROHN'S DISEASE
     Dosage: 6MG ONCE EVERY MON IV BOLUS
     Route: 040
     Dates: start: 20090901, end: 20100301

REACTIONS (1)
  - DRUG INEFFECTIVE [None]
